FAERS Safety Report 8425754-9 (Version None)
Quarter: 2012Q2

REPORT INFORMATION
  Report Type: 
  Country: None (occurrence: None)
  Receive Date: 20120611
  Receipt Date: 20120606
  Transmission Date: 20120825
  Serious: Yes (Other)
  Sender: FDA-Public Use
  Company Number: PHHY2012NO041239

PATIENT
  Sex: Female
  Weight: 67 kg

DRUGS (5)
  1. FEMARA [Suspect]
     Indication: BREAST CANCER
     Dosage: 2.5 MG
     Route: 048
     Dates: start: 20100603
  2. EBASTINE [Concomitant]
     Indication: HYPERSENSITIVITY
     Dosage: 20 MG
     Route: 048
     Dates: start: 20000101
  3. CITALOPRAM HYDROBROMIDE [Concomitant]
     Indication: DEPRESSION
     Dosage: 10 MG
     Route: 048
     Dates: start: 20110601
  4. TAMOXIFEN CITRATE [Concomitant]
     Dosage: 20 MG X 1
     Dates: start: 20081001, end: 20101001
  5. VALLERGAN [Concomitant]
     Indication: SLEEP DISORDER
     Dosage: 20 MG
     Route: 048
     Dates: start: 20000101

REACTIONS (3)
  - CONJUNCTIVAL HAEMORRHAGE [None]
  - SKIN HAEMORRHAGE [None]
  - PURPURA [None]
